FAERS Safety Report 18038342 (Version 2)
Quarter: 2020Q3

REPORT INFORMATION
  Report Type: Report from Study
  Country: BR (occurrence: BR)
  Receive Date: 20200717
  Receipt Date: 20200727
  Transmission Date: 20201103
  Serious: Yes (Other)
  Sender: FDA-Public Use
  Company Number: NVSC2019BR018318

PATIENT
  Age: 67 Year
  Sex: Female
  Weight: 58 kg

DRUGS (13)
  1. XOLAIR [Suspect]
     Active Substance: OMALIZUMAB
     Dosage: UNK, TWO AMPOULE
     Route: 058
     Dates: start: 20191108
  2. ALENIA [Concomitant]
     Indication: ASTHMA
     Dosage: 1 DF, BID
     Route: 048
  3. XOLAIR [Suspect]
     Active Substance: OMALIZUMAB
     Dosage: UNK
     Route: 058
     Dates: start: 20200420
  4. XOLAIR [Suspect]
     Active Substance: OMALIZUMAB
     Dosage: 2 DF, QMO (2 AMPOULES)
     Route: 058
     Dates: start: 202004
  5. XOLAIR [Suspect]
     Active Substance: OMALIZUMAB
     Dosage: TWO AMPOULENK
     Route: 058
     Dates: start: 20191010
  6. LANSOPRAZOLE. [Concomitant]
     Active Substance: LANSOPRAZOLE
     Indication: ABDOMINAL DISCOMFORT
     Dosage: 1 DF, QD
     Route: 065
  7. XOLAIR [Suspect]
     Active Substance: OMALIZUMAB
     Indication: ASTHMA
     Dosage: 300 MG,TWO AMPOULE
     Route: 058
     Dates: start: 20190916
  8. AZITHROMYCIN ANHYDROUS. [Suspect]
     Active Substance: AZITHROMYCIN ANHYDROUS
     Indication: ASTHMA
     Dosage: 250 MG, QD (STARED LAST SATURDAY)
     Route: 048
  9. XOLAIR [Suspect]
     Active Substance: OMALIZUMAB
     Dosage: 300 MG,(TWO AMPOULE OF 150 G)
     Route: 065
     Dates: start: 20190916
  10. XOLAIR [Suspect]
     Active Substance: OMALIZUMAB
     Dosage: UNK,TWO AMPOULE
     Route: 058
     Dates: start: 20191204
  11. GLIFAGE [Concomitant]
     Active Substance: METFORMIN HYDROCHLORIDE
     Indication: DIABETES MELLITUS
     Dosage: 1 DF, QD
     Route: 048
  12. LOSARTAN POTASSIUM/HYDROCHLOROTHIAZIDE [Concomitant]
     Active Substance: HYDROCHLOROTHIAZIDE\LOSARTAN POTASSIUM
     Indication: HYPERTENSION
     Dosage: 1 DF, QD
     Route: 048
  13. XOLAIR [Suspect]
     Active Substance: OMALIZUMAB
     Dosage: 2 DF, QMO (2 AMPOULES)
     Route: 058
     Dates: start: 202004

REACTIONS (23)
  - Lung disorder [Recovering/Resolving]
  - Fatigue [Recovered/Resolved]
  - Condition aggravated [Recovering/Resolving]
  - Product use in unapproved indication [Unknown]
  - Asthma [Recovering/Resolving]
  - Face oedema [Unknown]
  - Status asthmaticus [Not Recovered/Not Resolved]
  - Fatigue [Recovering/Resolving]
  - Swelling [Unknown]
  - Asthmatic crisis [Recovering/Resolving]
  - Gait inability [Recovering/Resolving]
  - Erythema [Unknown]
  - Dyspnoea [Recovering/Resolving]
  - Oedema [Not Recovered/Not Resolved]
  - Eye oedema [Unknown]
  - Therapeutic product effect incomplete [Recovering/Resolving]
  - Diabetes mellitus [Recovering/Resolving]
  - Skin discolouration [Unknown]
  - Elephantiasis [Unknown]
  - Chronic obstructive pulmonary disease [Not Recovered/Not Resolved]
  - Pigmentation disorder [Unknown]
  - Peripheral swelling [Unknown]
  - Feeling abnormal [Not Recovered/Not Resolved]

NARRATIVE: CASE EVENT DATE: 20190916
